FAERS Safety Report 21558634 (Version 2)
Quarter: 2022Q4

REPORT INFORMATION
  Report Type: Other
  Country: FR (occurrence: FR)
  Receive Date: 20221107
  Receipt Date: 20221116
  Transmission Date: 20230113
  Serious: Yes (Life-Threatening, Hospitalization)
  Sender: FDA-Public Use
  Company Number: None

PATIENT

DRUGS (7)
  1. VENLAFAXINE [Suspect]
     Active Substance: VENLAFAXINE HYDROCHLORIDE
     Indication: Toxicity to various agents
     Dosage: 2250 MILLIGRAM 1 TOTAL
     Route: 048
     Dates: start: 20220310, end: 20220310
  2. BROMAZEPAM [Suspect]
     Active Substance: BROMAZEPAM
     Indication: Toxicity to various agents
     Dosage: 360 MILLIGRAM 1 TOTAL
     Route: 048
     Dates: start: 20220310, end: 20220310
  3. ACETAMINOPHEN [Suspect]
     Active Substance: ACETAMINOPHEN
     Indication: Toxicity to various agents
     Dosage: 2500 MILLIGRAM 1 TOTAL
     Route: 048
     Dates: start: 20220310, end: 20220310
  4. CODEINE [Suspect]
     Active Substance: CODEINE
     Indication: Toxicity to various agents
     Dosage: 900 MILLIGRAM 1 TOTAL
     Route: 048
     Dates: start: 20220310, end: 20220310
  5. TRIMEPRAZINE [Suspect]
     Active Substance: TRIMEPRAZINE
     Indication: Toxicity to various agents
     Dosage: 2500 MILLIGRAM 1 TOTAL
     Route: 048
     Dates: start: 20220310, end: 20220310
  6. LORMETAZEPAM [Suspect]
     Active Substance: LORMETAZEPAM
     Indication: Toxicity to various agents
     Dosage: 56 MILLIGRAM 1 TOTAL
     Route: 048
     Dates: start: 20220310, end: 20220310
  7. PROPRANOLOL HYDROCHLORIDE [Suspect]
     Active Substance: PROPRANOLOL HYDROCHLORIDE
     Indication: Toxicity to various agents
     Dosage: 1600 MILLIGRAM 1 TOTAL
     Route: 048
     Dates: start: 20220310, end: 20220310

REACTIONS (3)
  - Cardiogenic shock [Recovered/Resolved]
  - Coma [Recovered/Resolved]
  - Toxicity to various agents [Recovered/Resolved]

NARRATIVE: CASE EVENT DATE: 20220310
